FAERS Safety Report 23073260 (Version 1)
Quarter: 2023Q4

REPORT INFORMATION
  Report Type: Spontaneous
  Country: US (occurrence: US)
  Receive Date: 20231017
  Receipt Date: 20231017
  Transmission Date: 20240109
  Serious: Yes (Death, Hospitalization, Other)
  Sender: FDA-Public Use
  Company Number: US-drreddys-LIT/USA/23/0179808

PATIENT
  Age: 76 Year
  Sex: Female

DRUGS (2)
  1. COLCHICINE [Suspect]
     Active Substance: COLCHICINE
     Indication: Pericarditis
  2. COLCHICINE [Suspect]
     Active Substance: COLCHICINE
     Indication: Pulmonary congestion

REACTIONS (3)
  - Tumour lysis syndrome [Fatal]
  - Chronic myelomonocytic leukaemia [Unknown]
  - Drug ineffective for unapproved indication [Unknown]
